FAERS Safety Report 8980102 (Version 1)
Quarter: 2012Q4

REPORT INFORMATION
  Report Type: 
  Country: US (occurrence: US)
  Receive Date: 20121221
  Receipt Date: 20121221
  Transmission Date: 20130627
  Serious: Yes (Other)
  Sender: FDA-Public Use
  Company Number: CHPA2012US025248

PATIENT
  Age: 87 Year
  Sex: Female

DRUGS (4)
  1. MYOFLEX ANALGESIC CREME [Suspect]
     Indication: MYALGIA
     Dosage: Unk, Unk
     Route: 061
     Dates: start: 2008
  2. COUMADIN//WARFARIN SODIUM [Concomitant]
     Indication: ANTICOAGULANT THERAPY
     Dosage: Unk, Unk
  3. TYLENOL ARTHRITIS [Concomitant]
     Indication: ARTHRITIS
     Dosage: Unk, Unk
     Route: 048
  4. ZICAM (ZINC) [Concomitant]
     Indication: PROPHYLAXIS
     Dosage: Unk, Unk

REACTIONS (2)
  - Bursitis [Recovered/Resolved]
  - Expired drug administered [Unknown]
